FAERS Safety Report 8226051-7 (Version None)
Quarter: 2012Q1

REPORT INFORMATION
  Report Type: 
  Country: None (occurrence: None)
  Receive Date: 20120321
  Receipt Date: 20120307
  Transmission Date: 20120608
  Serious: No
  Sender: FDA-Public Use
  Company Number: NL-ELI_LILLY_AND_COMPANY-NL201203003084

PATIENT
  Age: 11 Year
  Sex: Male
  Weight: 40 kg

DRUGS (3)
  1. DEXTROAMPHETAMINE [Concomitant]
     Dosage: 15 MG, BID
  2. STRATTERA [Suspect]
     Dosage: 40 MG, UNK
  3. STRATTERA [Suspect]
     Dosage: 60 MG, UNK

REACTIONS (2)
  - PRESYNCOPE [None]
  - DRUG INEFFECTIVE [None]
